FAERS Safety Report 5608162-5 (Version None)
Quarter: 2008Q1

REPORT INFORMATION
  Report Type: 
  Country: None (occurrence: None)
  Receive Date: 20080125
  Receipt Date: 20080109
  Transmission Date: 20080703
  Serious: Yes (Death, Other)
  Sender: FDA-Public Use
  Company Number: 2008BI001244

PATIENT
  Age: 36 Year
  Sex: Female

DRUGS (2)
  1. ZEVALIN [Suspect]
     Indication: CHEMOTHERAPY
     Dosage: 1.2 GBQ;1X;IV
     Dates: start: 20071109, end: 20071109
  2. ZEVALIN [Suspect]
     Indication: NON-HODGKIN'S LYMPHOMA
     Dosage: 1.2 GBQ;1X;IV
     Dates: start: 20071109, end: 20071109

REACTIONS (6)
  - ASTHENIA [None]
  - CYTOMEGALOVIRUS INFECTION [None]
  - ENTERITIS [None]
  - RESPIRATORY FAILURE [None]
  - SEPTIC SHOCK [None]
  - STAPHYLOCOCCAL SEPSIS [None]
